FAERS Safety Report 15808552 (Version 5)
Quarter: 2020Q2

REPORT INFORMATION
  Report Type: Report from Study
  Country: IT (occurrence: IT)
  Receive Date: 20190110
  Receipt Date: 20200627
  Transmission Date: 20200713
  Serious: Yes (Other)
  Sender: FDA-Public Use
  Company Number: PHHY2017IT052014

PATIENT
  Age: 58 Year
  Sex: Male

DRUGS (1)
  1. GILENYA [Suspect]
     Active Substance: FINGOLIMOD HYDROCHLORIDE
     Indication: MULTIPLE SCLEROSIS
     Dosage: 0.5 MG, QD
     Route: 048
     Dates: start: 20130816, end: 20190109

REACTIONS (10)
  - Naevoid melanoma [Not Recovered/Not Resolved]
  - Skin papilloma [Unknown]
  - Bowen^s disease [Not Recovered/Not Resolved]
  - Skin lesion [Not Recovered/Not Resolved]
  - Hyposideraemia [Recovered/Resolved]
  - Flushing [Not Recovered/Not Resolved]
  - Eye irritation [Unknown]
  - Fatigue [Not Recovered/Not Resolved]
  - Visual acuity reduced [Not Recovered/Not Resolved]
  - Erectile dysfunction [Not Recovered/Not Resolved]

NARRATIVE: CASE EVENT DATE: 20161215
